FAERS Safety Report 6093105-3 (Version None)
Quarter: 2009Q1

REPORT INFORMATION
  Report Type: 
  Country: None (occurrence: None)
  Receive Date: 20090226
  Receipt Date: 20090220
  Transmission Date: 20090719
  Serious: Yes (Other)
  Sender: FDA-Public Use
  Company Number: PT-JNJFOC-20090205212

PATIENT
  Age: 62 Year
  Sex: Male

DRUGS (9)
  1. TAVANIC [Suspect]
     Indication: URINARY RETENTION
     Route: 048
  2. BENESTAN [Suspect]
     Route: 065
  3. BENESTAN [Suspect]
     Indication: DRUG USE FOR UNKNOWN INDICATION
     Route: 065
  4. FINASTERIDE [Concomitant]
     Indication: URINARY RETENTION
     Route: 048
  5. OMEPRAZOLE [Concomitant]
     Route: 065
  6. PLAQUINOL [Concomitant]
     Route: 065
  7. PROTAXIL [Concomitant]
     Route: 065
  8. NIMED [Concomitant]
     Route: 065
  9. NUTRITIONAL SUPPLEMENT [Concomitant]
     Route: 065

REACTIONS (4)
  - HEART RATE INCREASED [None]
  - HYPOTENSION [None]
  - LOSS OF CONSCIOUSNESS [None]
  - MALAISE [None]
